FAERS Safety Report 6680238-3 (Version None)
Quarter: 2010Q2

REPORT INFORMATION
  Report Type: 
  Country: None (occurrence: None)
  Receive Date: 20100413
  Receipt Date: 20100408
  Transmission Date: 20101027
  Serious: Yes (Death)
  Sender: FDA-Public Use
  Company Number: US-GILEAD-2010-0027026

PATIENT
  Sex: Male
  Weight: 61.29 kg

DRUGS (15)
  1. LETAIRIS [Suspect]
     Indication: PULMONARY ARTERIAL HYPERTENSION
     Route: 048
     Dates: start: 20080916
  2. COUMADIN [Concomitant]
  3. FUROSEMIDE [Concomitant]
  4. PANTOPRAZOLE [Concomitant]
  5. ALBUTEROL [Concomitant]
  6. ZOLPIDEM [Concomitant]
  7. FERROUS SULFATE TAB [Concomitant]
  8. TRAMADOL HCL [Concomitant]
  9. ACETAMINOPHEN [Concomitant]
  10. SIMVASTATIN [Concomitant]
  11. ADVAIR DISKUS 100/50 [Concomitant]
  12. CALCIUM CARBONATE [Concomitant]
  13. SPIRIVA [Concomitant]
  14. VITAMIN D [Concomitant]
  15. OXYGEN [Concomitant]

REACTIONS (3)
  - CEREBRAL ISCHAEMIA [None]
  - ELECTROMECHANICAL DISSOCIATION [None]
  - MULTI-ORGAN FAILURE [None]
